FAERS Safety Report 5924723-8 (Version None)
Quarter: 2008Q4

REPORT INFORMATION
  Report Type: 
  Country: None (occurrence: None)
  Receive Date: 20081016
  Receipt Date: 20080930
  Transmission Date: 20090506
  Serious: Yes (Other)
  Sender: FDA-Public Use
  Company Number: 2008US002615

PATIENT
  Age: 75 Year
  Sex: Female

DRUGS (13)
  1. LEXISCAN [Suspect]
     Indication: SCAN MYOCARDIAL PERFUSION
     Dates: start: 20080911, end: 20080911
  2. ADVAIR DISKUS 100/50 [Concomitant]
  3. LOPRESSOR [Concomitant]
  4. PLAVIX(CLOPIDOGRREL SULFATE) [Concomitant]
  5. CELEBREX [Concomitant]
  6. ASPIRIN(CITRIC ACID) [Concomitant]
  7. PREVACID [Concomitant]
  8. SYNTHROID [Concomitant]
  9. AVALIDE [Concomitant]
  10. COLESTID(COLESTIPOL HYDFOCHLORIDE) [Concomitant]
  11. XANAX [Concomitant]
  12. VITAMINS(THIAMINE HYDROCHLORIDE, RETINOL, ASCORBIC ACID) [Concomitant]
  13. PRAVACHOL [Concomitant]

REACTIONS (2)
  - ABDOMINAL PAIN [None]
  - PAIN IN EXTREMITY [None]
